FAERS Safety Report 23816621 (Version 1)
Quarter: 2024Q2

REPORT INFORMATION
  Report Type: Spontaneous
  Country: DE (occurrence: DE)
  Receive Date: 20240503
  Receipt Date: 20240503
  Transmission Date: 20240715
  Serious: Yes (Hospitalization, Other)
  Sender: FDA-Public Use
  Company Number: None

PATIENT
  Age: 41 Year
  Sex: Female

DRUGS (12)
  1. CYCLOPHOSPHAMIDE [Suspect]
     Active Substance: CYCLOPHOSPHAMIDE
     Indication: Burkitt^s lymphoma
     Dosage: 200 MG/BODY SURFACE ADMINISTERED, AS PART OF CHOP REGIMEN
     Route: 065
     Dates: start: 20240123, end: 20240126
  2. CYCLOPHOSPHAMIDE [Suspect]
     Active Substance: CYCLOPHOSPHAMIDE
     Indication: B-cell lymphoma
  3. DOXORUBICIN [Suspect]
     Active Substance: DOXORUBICIN
     Indication: B-cell lymphoma
     Dosage: UNK
     Route: 042
     Dates: start: 20240120, end: 20240126
  4. DOXORUBICIN [Suspect]
     Active Substance: DOXORUBICIN
     Indication: Burkitt^s lymphoma
     Dosage: UNK, AS PART OF CHOP REGIMEN
     Route: 065
     Dates: start: 20240123, end: 20240126
  5. PREDNISONE [Suspect]
     Active Substance: PREDNISONE
     Indication: B-cell lymphoma
     Dosage: UNK, AS A PART OF R-CHOP SCHEME
     Route: 042
     Dates: start: 20240128
  6. PREDNISONE [Suspect]
     Active Substance: PREDNISONE
     Indication: Burkitt^s lymphoma
     Dosage: UNK, AS PART OF CHOP REGIMEN
     Route: 065
     Dates: start: 20240123, end: 20240126
  7. PREDNISOLONE [Suspect]
     Active Substance: PREDNISOLONE
     Indication: Burkitt^s lymphoma
     Dosage: UNK, AS A PART OF R-CHOP SCHEME
     Route: 042
     Dates: start: 20240129
  8. PREDNISOLONE [Suspect]
     Active Substance: PREDNISOLONE
     Indication: B-cell lymphoma
  9. RITUXIMAB [Suspect]
     Active Substance: RITUXIMAB
     Indication: Burkitt^s lymphoma
     Dosage: 200 MG/M2
     Route: 042
     Dates: start: 20240125, end: 20240126
  10. RITUXIMAB [Suspect]
     Active Substance: RITUXIMAB
     Indication: B-cell lymphoma
  11. VINCRISTINE [Suspect]
     Active Substance: VINCRISTINE
     Indication: Burkitt^s lymphoma
     Dosage: UNK, AS PART OF CHOP REGIMEN
     Route: 065
     Dates: start: 20240123, end: 20240126
  12. VINCRISTINE [Suspect]
     Active Substance: VINCRISTINE
     Indication: B-cell lymphoma

REACTIONS (14)
  - Pain of skin [Unknown]
  - Skin burning sensation [Unknown]
  - Blood blister [Unknown]
  - Rash [Recovered/Resolved]
  - Rash maculo-papular [Unknown]
  - Mucosal inflammation [Unknown]
  - Toxic epidermal necrolysis [Recovered/Resolved]
  - Leukopenia [Unknown]
  - Febrile neutropenia [Unknown]
  - Tumour lysis syndrome [Unknown]
  - Candida sepsis [Unknown]
  - Escherichia sepsis [Unknown]
  - Skin reaction [Unknown]
  - Blister [Unknown]

NARRATIVE: CASE EVENT DATE: 20240130
